FAERS Safety Report 10479101 (Version 2)
Quarter: 2014Q4

REPORT INFORMATION
  Report Type: Report from Study
  Country: MX (occurrence: MX)
  Receive Date: 20140926
  Receipt Date: 20141011
  Transmission Date: 20150528
  Serious: Yes (Hospitalization)
  Sender: FDA-Public Use
  Company Number: PHHY2014MX125973

PATIENT
  Age: 66 Year
  Sex: Male

DRUGS (2)
  1. GALVUS [Suspect]
     Active Substance: VILDAGLIPTIN
     Indication: DIABETES MELLITUS
     Dosage: 50 MG, DAILY
     Route: 065
     Dates: start: 201101
  2. EXFORGE [Suspect]
     Active Substance: AMLODIPINE BESYLATE\VALSARTAN
     Indication: HYPERTENSION
     Dosage: 1 DF, DAILY
     Route: 048
     Dates: start: 201001, end: 20140519

REACTIONS (6)
  - Fall [Unknown]
  - Head injury [Unknown]
  - Cerebral thrombosis [Unknown]
  - Coronary artery occlusion [Unknown]
  - Diplegia [Recovering/Resolving]
  - Muscle atrophy [Recovering/Resolving]

NARRATIVE: CASE EVENT DATE: 201405
